FAERS Safety Report 18439105 (Version 2)
Quarter: 2022Q4

REPORT INFORMATION
  Report Type: Report from Study
  Country: NL (occurrence: NL)
  Receive Date: 20201028
  Receipt Date: 20221019
  Transmission Date: 20230113
  Serious: Yes (Hospitalization, Other)
  Sender: FDA-Public Use
  Company Number: NL-GILEAD-2020-0460624

PATIENT
  Age: 64 Year
  Sex: Male
  Weight: 91 kg

DRUGS (20)
  1. REMDESIVIR [Interacting]
     Active Substance: REMDESIVIR
     Indication: COVID-19
     Dosage: 100 MG, QD
     Route: 042
     Dates: start: 20200416, end: 20200420
  2. CHLOROQUINE [Interacting]
     Active Substance: CHLOROQUINE
     Indication: COVID-19
     Dosage: 600 MG LOADING DOSE
     Route: 065
  3. ROCURONIUM [Concomitant]
     Active Substance: ROCURONIUM BROMIDE
     Indication: Muscle relaxant therapy
     Dosage: 7 UG
     Route: 042
     Dates: start: 20200414
  4. MIDAZOLAM [Concomitant]
     Active Substance: MIDAZOLAM
     Indication: Sedative therapy
     Dosage: 5 MG
     Route: 042
     Dates: start: 20200409
  5. CLONIDINE [Concomitant]
     Active Substance: CLONIDINE
     Indication: Sedative therapy
     Dosage: 1200 UG
     Route: 042
     Dates: start: 20200403
  6. SUFENTANIL [Concomitant]
     Active Substance: SUFENTANIL
     Dosage: 50 UG
     Route: 042
     Dates: start: 20200405
  7. NADROPARIN [Concomitant]
     Active Substance: NADROPARIN
     Dosage: UNK
     Route: 058
     Dates: start: 20200416
  8. ACETAMINOPHEN [Concomitant]
     Active Substance: ACETAMINOPHEN
     Dosage: 1000 MG
     Route: 048
     Dates: start: 20200401
  9. COLISTIN [Concomitant]
     Active Substance: COLISTIN
     Dosage: 10000 IU
     Route: 055
     Dates: start: 20200416
  10. ORABASE BABY [Concomitant]
     Dosage: 0.5 MG
     Route: 002
     Dates: start: 20200404
  11. AMLODIPINE [Concomitant]
     Active Substance: AMLODIPINE BESYLATE
     Dosage: 10 MG
     Route: 048
     Dates: start: 20200416
  12. ATORVASTATIN [Concomitant]
     Active Substance: ATORVASTATIN
     Indication: Prophylaxis
     Dosage: 20 MG
     Route: 048
     Dates: start: 20200404, end: 20200416
  13. SIMVASTATIN [Concomitant]
     Active Substance: SIMVASTATIN
     Indication: Blood cholesterol decreased
     Dosage: UNK
  14. SIMVASTATIN [Concomitant]
     Active Substance: SIMVASTATIN
     Dosage: UNK
  15. CEFUROXIME [Concomitant]
     Active Substance: CEFUROXIME
     Indication: Antibiotic therapy
     Dosage: UNK
     Dates: start: 20200421, end: 20200421
  16. METOCLOPRAMIDE [Concomitant]
     Active Substance: METOCLOPRAMIDE
     Indication: Antiemetic supportive care
     Dosage: UNK
     Dates: start: 20200420, end: 20200421
  17. TOBRAMYCIN [Concomitant]
     Active Substance: TOBRAMYCIN
     Indication: Antibiotic therapy
     Dosage: UNK
     Dates: start: 20200421, end: 20200421
  18. AMIODARONE [Concomitant]
     Active Substance: AMIODARONE
     Indication: Atrial fibrillation
     Dosage: 700 MG, UNK
     Dates: start: 20200418
  19. OXYGEN [Concomitant]
     Active Substance: OXYGEN
  20. MOVICOLON [Concomitant]
     Active Substance: POLYETHYLENE GLYCOL 3350\POTASSIUM CHLORIDE\SODIUM BICARBONATE\SODIUM CHLORIDE
     Indication: Laxative supportive care
     Route: 048
     Dates: start: 20200404

REACTIONS (4)
  - Hepatotoxicity [Unknown]
  - Acute hepatic failure [Recovered/Resolved]
  - Respiratory failure [Unknown]
  - Drug interaction [Unknown]

NARRATIVE: CASE EVENT DATE: 20200417
